FAERS Safety Report 7715778-9 (Version None)
Quarter: 2011Q3

REPORT INFORMATION
  Report Type: 
  Country: None (occurrence: None)
  Receive Date: 20110829
  Receipt Date: 20110818
  Transmission Date: 20111222
  Serious: Yes (Other)
  Sender: FDA-Public Use
  Company Number: US-ELI_LILLY_AND_COMPANY-US201108006398

PATIENT
  Sex: Male

DRUGS (3)
  1. HUMULIN 70/30 [Suspect]
     Indication: DIABETES MELLITUS
     Dosage: 118 U, EACH MORNING
  2. HUMULIN R [Suspect]
  3. HUMULIN N [Suspect]
     Dosage: 90 U, EACH EVENING

REACTIONS (4)
  - INSULIN RESISTANCE [None]
  - OPTIC NERVE INJURY [None]
  - GLAUCOMA [None]
  - VISUAL ACUITY REDUCED [None]
